FAERS Safety Report 12168322 (Version 1)
Quarter: 2016Q1

REPORT INFORMATION
  Report Type: Spontaneous
  Country: US (occurrence: None)
  Receive Date: 20160309
  Receipt Date: 20160309
  Transmission Date: 20160526
  Serious: Yes (Other)
  Sender: FDA-Public Use
  Company Number: None

PATIENT
  Age: 44 Year
  Sex: Male
  Weight: 97.52 kg

DRUGS (2)
  1. CISPLATIN 200MG FRESENIUS [Suspect]
     Active Substance: CISPLATIN
     Indication: LUNG CANCER METASTATIC
     Route: 042
  2. PACLITAXEL 300MG HOSPIRA [Suspect]
     Active Substance: PACLITAXEL
     Indication: LUNG CANCER METASTATIC
     Route: 042

REACTIONS (1)
  - Erythema [None]

NARRATIVE: CASE EVENT DATE: 20160304
